FAERS Safety Report 4956246-7 (Version None)
Quarter: 2006Q1

REPORT INFORMATION
  Report Type: 
  Country: None (occurrence: None)
  Receive Date: 20060329
  Receipt Date: 20060315
  Transmission Date: 20060701
  Serious: Yes (Other)
  Sender: FDA-Public Use
  Company Number: DE-JNJFOC-20060304191

PATIENT
  Sex: Female

DRUGS (4)
  1. RISPERDAL CONSTA [Suspect]
     Indication: SCHIZOPHRENIA
     Dosage: TAKEN FOR MORE THAN 6 MONTHS
     Route: 030
  2. ZYPREXA [Suspect]
     Indication: SCHIZOPHRENIA
     Route: 048
  3. DIAZEPAM [Concomitant]
     Route: 048
  4. ERYTHROMYCIN [Concomitant]
     Indication: BRONCHITIS
     Route: 042

REACTIONS (5)
  - BRONCHITIS [None]
  - CENTRAL PONTINE MYELINOLYSIS [None]
  - DRUG EXPOSURE DURING PREGNANCY [None]
  - HYPONATRAEMIA [None]
  - VOMITING IN PREGNANCY [None]
